FAERS Safety Report 20486635 (Version 1)
Quarter: 2022Q1

REPORT INFORMATION
  Report Type: Spontaneous
  Country: AU (occurrence: AU)
  Receive Date: 20220217
  Receipt Date: 20220217
  Transmission Date: 20220423
  Serious: Yes (Hospitalization)
  Sender: FDA-Public Use
  Company Number: AU-ABBVIE-21K-008-4053557-00

PATIENT
  Age: 67 Year
  Sex: Male

DRUGS (1)
  1. ADALIMUMAB [Suspect]
     Active Substance: ADALIMUMAB
     Indication: Pityriasis rubra pilaris
     Route: 058

REACTIONS (3)
  - Organising pneumonia [Unknown]
  - Interstitial lung disease [Unknown]
  - Off label use [Unknown]
